FAERS Safety Report 7615619-4 (Version None)
Quarter: 2011Q3

REPORT INFORMATION
  Report Type: 
  Country: None (occurrence: None)
  Receive Date: 20110711
  Receipt Date: 20110613
  Transmission Date: 20111222
  Serious: Yes (Hospitalization)
  Sender: FDA-Public Use
  Company Number: 14271175

PATIENT
  Age: 72 Year
  Sex: Male

DRUGS (11)
  1. ASPIRIN [Concomitant]
  2. ENALAPRIL MALEATE [Concomitant]
  3. CLOPIDOGREL BISULFATE [Concomitant]
  4. DIGOXIN [Concomitant]
  5. ATENOLOL [Concomitant]
  6. SPIRONOLACTONE [Concomitant]
  7. WARFARIN SODIUM [Suspect]
     Indication: THROMBOSIS PROPHYLAXIS
     Dosage: 2 MILLIGRAM 1 DAY
     Route: 048
     Dates: start: 20080617
  8. BROMAZEPAM (BROMAZEPAM) [Concomitant]
  9. PLACEBO [Suspect]
     Indication: THROMBOSIS PROPHYLAXIS
     Route: 048
     Dates: start: 20080617
  10. CARVEDILOL [Concomitant]
  11. SIMVASTATIN [Concomitant]

REACTIONS (11)
  - NEPHROPATHY TOXIC [None]
  - ATRIAL FIBRILLATION [None]
  - ACUTE MYOCARDIAL INFARCTION [None]
  - PLEURAL EFFUSION [None]
  - CARDIAC FAILURE [None]
  - PULMONARY CONGESTION [None]
  - ANGINA UNSTABLE [None]
  - TACHYCARDIA [None]
  - RENAL FAILURE CHRONIC [None]
  - CORONARY ARTERY OCCLUSION [None]
  - HEAD INJURY [None]
